FAERS Safety Report 6032748-X (Version None)
Quarter: 2009Q1

REPORT INFORMATION
  Report Type: 
  Country: None (occurrence: None)
  Receive Date: 20090109
  Receipt Date: 20081223
  Transmission Date: 20090719
  Serious: Yes (Hospitalization)
  Sender: FDA-Public Use
  Company Number: GB-PFIZER INC-2008160279

PATIENT

DRUGS (1)
  1. SUTENT [Suspect]
     Indication: METASTATIC RENAL CELL CARCINOMA
     Dosage: 50 MG, DAILY, EVERY 4 WEEKS
     Route: 048
     Dates: start: 20080307, end: 20081205

REACTIONS (4)
  - EPISTAXIS [None]
  - HYPERTENSION [None]
  - LETHARGY [None]
  - MALAISE [None]
